FAERS Safety Report 8272001-7 (Version None)
Quarter: 2012Q1

REPORT INFORMATION
  Report Type: 
  Country: None (occurrence: None)
  Receive Date: 20120327
  Receipt Date: 20110408
  Transmission Date: 20120608
  Serious: Yes (Other)
  Sender: FDA-Public Use
  Company Number: 2011SP016047

PATIENT
  Age: 57 Year
  Sex: Female
  Weight: 65.5448 kg

DRUGS (18)
  1. FLONASE [Concomitant]
  2. RIBAVIRIN [Suspect]
     Indication: PRODUCT USED FOR UNKNOWN INDICATION
     Dosage: 1000 MG, QD, 400 MG, BID
     Dates: start: 20110412
  3. NORVASC [Concomitant]
  4. OMEPRAZOLE [Concomitant]
  5. CELEXA [Concomitant]
  6. BENAZEPRIL/HYDROCHORTHIAZIDE [Concomitant]
  7. ADVAIR DISKUS 100/50 [Concomitant]
  8. AMITRIPTYLINE HCL [Concomitant]
  9. PEG-INTRON [Suspect]
     Indication: HEPATITIS C
     Dosage: 0.4 ML, QW, SC, 0.2 ML, SC, 0.1 ML, ONCE
     Dates: start: 20110322
  10. PEG-INTRON [Suspect]
     Indication: HEPATITIS C
     Dosage: 0.4 ML, QW, SC, 0.2 ML, SC, 0.1 ML, ONCE
     Dates: start: 20110301, end: 20110315
  11. PEG-INTRON [Suspect]
     Indication: HEPATITIS C
     Dosage: 0.4 ML, QW, SC, 0.2 ML, SC, 0.1 ML, ONCE
     Dates: start: 20110412
  12. ASTELIN [Concomitant]
  13. ALBUTEROL SULFATE [Concomitant]
  14. ZYRTEC [Concomitant]
  15. ALBUTEROL [Concomitant]
  16. POTASSIUM CHLORIDE [Concomitant]
  17. GUAIFENESIN/CODEINE [Concomitant]
  18. PREMARIN [Concomitant]

REACTIONS (13)
  - RED BLOOD CELL COUNT DECREASED [None]
  - PAIN [None]
  - NEUTROPHIL COUNT DECREASED [None]
  - PYREXIA [None]
  - WHITE BLOOD CELL COUNT DECREASED [None]
  - PLATELET COUNT DECREASED [None]
  - NAUSEA [None]
  - MIGRAINE [None]
  - INCREASED TENDENCY TO BRUISE [None]
  - DIZZINESS [None]
  - MUSCLE TIGHTNESS [None]
  - HAEMOGLOBIN DECREASED [None]
  - EYE PRURITUS [None]
